FAERS Safety Report 8570625 (Version 3)
Quarter: 2013Q1

REPORT INFORMATION
  Report Type: Spontaneous
  Country: US (occurrence: US)
  Receive Date: 20120521
  Receipt Date: 20130318
  Transmission Date: 20140127
  Serious: Yes (Life-Threatening, Congenital Anomaly, Other)
  Sender: FDA-Public Use
  Company Number: US-PFIZER INC-2012120400

PATIENT
  Sex: Male
  Weight: 3.3 kg

DRUGS (2)
  1. ZOLOFT [Suspect]
     Dosage: UNK
     Route: 064
     Dates: start: 200812, end: 200902
  2. PRENATAL VITAMINS [Concomitant]
     Dosage: UNK
     Route: 064

REACTIONS (7)
  - Maternal exposure during pregnancy [Unknown]
  - Congenital anomaly [Unknown]
  - Talipes [Unknown]
  - Craniosynostosis [Unknown]
  - Cleft palate [Unknown]
  - Pectus excavatum [Unknown]
  - Strabismus [Unknown]
